FAERS Safety Report 4960165-X (Version None)
Quarter: 2006Q1

REPORT INFORMATION
  Report Type: 
  Country: None (occurrence: None)
  Receive Date: 20060331
  Receipt Date: 20060323
  Transmission Date: 20060701
  Serious: Yes (Congenital Anomaly)
  Sender: FDA-Public Use
  Company Number: FR-ABBOTT-06P-056-0328946-00

PATIENT
  Age: 9 Month
  Sex: Female

DRUGS (2)
  1. DEPAKENE [Suspect]
     Indication: DRUG EXPOSURE DURING PREGNANCY
  2. CLOBAZAM [Suspect]
     Indication: DRUG EXPOSURE DURING PREGNANCY

REACTIONS (8)
  - AGITATION [None]
  - DEVELOPMENTAL DELAY [None]
  - FACIAL DYSMORPHISM [None]
  - HYPERTONIA NEONATAL [None]
  - MICROCEPHALY [None]
  - PIGMENTATION DISORDER [None]
  - SELF MUTILATION [None]
  - TRICHOTILLOMANIA [None]
